FAERS Safety Report 9796018 (Version 2)
Quarter: 2014Q1

REPORT INFORMATION
  Report Type: Spontaneous
  Country: US (occurrence: US)
  Receive Date: 20140103
  Receipt Date: 20140103
  Transmission Date: 20141002
  Serious: No
  Sender: FDA-Public Use
  Company Number: US-GILEAD-2010-0034246

PATIENT
  Sex: Female

DRUGS (2)
  1. CAYSTON [Suspect]
     Indication: CYSTIC FIBROSIS
     Dates: start: 20101109
  2. VORICONAZOLE [Concomitant]

REACTIONS (1)
  - Photosensitivity reaction [Recovered/Resolved]
